FAERS Safety Report 16259546 (Version 2)
Quarter: 2019Q2

REPORT INFORMATION
  Report Type: Spontaneous
  Country: SE (occurrence: SE)
  Receive Date: 20190501
  Receipt Date: 20190509
  Transmission Date: 20190711
  Serious: Yes (Hospitalization)
  Sender: FDA-Public Use
  Company Number: SE-TEVA-2019-SE-1044102

PATIENT
  Sex: Male

DRUGS (4)
  1. FENTANYL. [Concomitant]
     Active Substance: FENTANYL
     Dosage: NOT USED 2017-07-23
  2. ZYPREXA [Concomitant]
     Active Substance: OLANZAPINE
     Dosage: ^DOSES OK^
  3. DIMOR 2 MG FILMDRAGERAD TABLETT [Suspect]
     Active Substance: LOPERAMIDE HYDROCHLORIDE
     Dosage: 2017-07-23 ADOPTED 42-50 ST DIMOR
     Route: 048
  4. LAMOTRIGINE. [Concomitant]
     Active Substance: LAMOTRIGINE
     Dosage: ^DOSES OK^

REACTIONS (4)
  - Drug abuse [Unknown]
  - Electrocardiogram QRS complex prolonged [Unknown]
  - Intentional overdose [Unknown]
  - Intentional self-injury [Unknown]

NARRATIVE: CASE EVENT DATE: 2017
